FAERS Safety Report 6495583-4 (Version None)
Quarter: 2009Q4

REPORT INFORMATION
  Report Type: 
  Country: None (occurrence: None)
  Receive Date: 20091214
  Receipt Date: 20090721
  Transmission Date: 20100525
  Serious: No
  Sender: FDA-Public Use
  Company Number: US-BRISTOL-MYERS SQUIBB COMPANY-14706584

PATIENT
  Age: 49 Year
  Sex: Male
  Weight: 100 kg

DRUGS (1)
  1. ABILIFY [Suspect]
     Indication: AFFECTIVE DISORDER
     Dosage: DOSE REDUCED TO 1/2 TABLET (TO EQUAL 2.5MG) ON MAY/2009
     Route: 048
     Dates: start: 20090201

REACTIONS (1)
  - WEIGHT INCREASED [None]
